FAERS Safety Report 12472378 (Version 1)
Quarter: 2016Q2

REPORT INFORMATION
  Report Type: Spontaneous
  Country: IL (occurrence: IL)
  Receive Date: 20160616
  Receipt Date: 20160616
  Transmission Date: 20160815
  Serious: Yes (Hospitalization, Other)
  Sender: FDA-Public Use
  Company Number: IL-TEVA-657021ISR

PATIENT
  Age: 80 Year
  Sex: Female
  Weight: 63 kg

DRUGS (10)
  1. ACETYLSALICYLIC ACID 100 MG [Concomitant]
     Indication: PROPHYLAXIS
     Dosage: 100 MILLIGRAM DAILY; NOON WITH FOOD
  2. CALCIUM CARBONATE 600+D [Concomitant]
     Dosage: MORNING WITH FOOD
  3. SIMVASTATIN 40 MG [Concomitant]
     Active Substance: SIMVASTATIN
     Indication: HYPERCHOLESTEROLAEMIA
     Dosage: 40 MILLIGRAM DAILY; NIGHT
  4. VITAMIN D3 400 IU [Concomitant]
     Dosage: 5 GTT DAILY; MORNING
  5. MIRTAZAPINE TEVA 30 MG [Suspect]
     Active Substance: MIRTAZAPINE
     Indication: SLEEP DISORDER
     Dosage: 15 MILLIGRAM DAILY;
     Route: 048
     Dates: start: 20160422, end: 20160424
  6. NORMALOL 25 MG [Concomitant]
     Indication: HYPERTENSION
     Dosage: 25 MILLIGRAM DAILY; MORNING
  7. METFORMIN [Concomitant]
     Active Substance: METFORMIN HYDROCHLORIDE
     Indication: DIABETES MELLITUS
     Dosage: 1700 MILLIGRAM DAILY;
  8. ZOLPIDEM [Concomitant]
     Active Substance: ZOLPIDEM\ZOLPIDEM TARTRATE
     Dosage: 0.5 TABLET BEFORER BED TIME
  9. MIRTAZAPINE TEVA 30 MG [Suspect]
     Active Substance: MIRTAZAPINE
     Indication: ANXIETY
  10. VITAMIN B12 1000 MCG [Concomitant]
     Dosage: 1000 MICROGRAM DAILY; MORNING
     Route: 060

REACTIONS (2)
  - Altered state of consciousness [Recovered/Resolved]
  - Seizure [Recovered/Resolved]

NARRATIVE: CASE EVENT DATE: 20160424
